FAERS Safety Report 18840225 (Version 1)
Quarter: 2021Q1

REPORT INFORMATION
  Report Type: Spontaneous
  Country: CN (occurrence: CN)
  Receive Date: 20210203
  Receipt Date: 20210203
  Transmission Date: 20210419
  Serious: Yes (Other)
  Sender: FDA-Public Use
  Company Number: CN-ROCHE-2755345

PATIENT
  Age: 50 Year
  Sex: Male

DRUGS (12)
  1. CALCIUM FOLINATE [Suspect]
     Active Substance: LEUCOVORIN CALCIUM
     Indication: METASTASES TO LUNG
     Route: 042
     Dates: start: 20190925, end: 20200115
  2. AVASTIN [Suspect]
     Active Substance: BEVACIZUMAB
     Indication: METASTASES TO LUNG
     Route: 065
     Dates: start: 20190925, end: 20200115
  3. CALCIUM FOLINATE [Suspect]
     Active Substance: LEUCOVORIN CALCIUM
     Indication: MALIGNANT ANORECTAL NEOPLASM
     Route: 042
     Dates: start: 2020
  4. IRINOTECAN [Suspect]
     Active Substance: IRINOTECAN
     Indication: MALIGNANT ANORECTAL NEOPLASM
     Route: 042
     Dates: start: 2020
  5. CETUXIMAB. [Suspect]
     Active Substance: CETUXIMAB
     Indication: MALIGNANT ANORECTAL NEOPLASM
  6. FLUOROURACIL. [Suspect]
     Active Substance: FLUOROURACIL
     Indication: METASTASES TO LUNG
     Dosage: 0.5G BY INTRAVENOUS INJECTION FOR DAY1 AND 4 G BY PUMP INJECTION FOR 46 HOURS
     Route: 042
     Dates: start: 20190925, end: 20200115
  7. FLUOROURACIL. [Suspect]
     Active Substance: FLUOROURACIL
     Indication: MALIGNANT ANORECTAL NEOPLASM
     Dosage: 0.5G BY INTRAVENOUS INJECTION FOR DAY1 AND 4 G BY PUMP INJECTION FOR 46 HOURS
     Route: 042
     Dates: start: 2020
  8. OXALIPLATIN. [Concomitant]
     Active Substance: OXALIPLATIN
     Indication: METASTASES TO LUNG
     Route: 042
     Dates: start: 20190925, end: 20200115
  9. CETUXIMAB. [Suspect]
     Active Substance: CETUXIMAB
     Indication: METASTASES TO LUNG
     Route: 065
     Dates: start: 2020
  10. OXALIPLATIN. [Concomitant]
     Active Substance: OXALIPLATIN
     Indication: MALIGNANT ANORECTAL NEOPLASM
  11. AVASTIN [Suspect]
     Active Substance: BEVACIZUMAB
     Indication: MALIGNANT ANORECTAL NEOPLASM
  12. IRINOTECAN [Suspect]
     Active Substance: IRINOTECAN
     Indication: METASTASES TO LUNG
     Route: 042
     Dates: start: 20190925, end: 20200115

REACTIONS (3)
  - Myelosuppression [Recovering/Resolving]
  - Rash [Unknown]
  - Agranulocytosis [Unknown]
